FAERS Safety Report 25456240 (Version 1)
Quarter: 2025Q2

REPORT INFORMATION
  Report Type: Spontaneous
  Country: AU (occurrence: AU)
  Receive Date: 20250619
  Receipt Date: 20250619
  Transmission Date: 20250717
  Serious: Yes (Other)
  Sender: SANOFI AVENTIS
  Company Number: AU-SA-2025SA174009

PATIENT
  Age: 55 Year
  Sex: Female

DRUGS (3)
  1. LEFLUNOMIDE [Suspect]
     Active Substance: LEFLUNOMIDE
     Indication: Product used for unknown indication
  2. METHOTREXATE [Suspect]
     Active Substance: METHOTREXATE
     Indication: Product used for unknown indication
  3. COSENTYX [Suspect]
     Active Substance: SECUKINUMAB
     Indication: Psoriatic arthropathy
     Route: 058
     Dates: start: 20221116

REACTIONS (6)
  - Chest pain [Unknown]
  - Condition aggravated [Unknown]
  - C-reactive protein increased [Unknown]
  - Muscle injury [Unknown]
  - Plantar fasciitis [Unknown]
  - Tendonitis [Unknown]

NARRATIVE: CASE EVENT DATE: 20230807
